FAERS Safety Report 9523195 (Version 2)
Quarter: 2013Q4

REPORT INFORMATION
  Report Type: Spontaneous
  Country: JP (occurrence: JP)
  Receive Date: 20130913
  Receipt Date: 20131003
  Transmission Date: 20140711
  Serious: Yes (Hospitalization)
  Sender: FDA-Public Use
  Company Number: JP-GLAXOSMITHKLINE-B0922303A

PATIENT
  Sex: Female

DRUGS (3)
  1. LAMICTAL [Suspect]
     Indication: BLEPHAROSPASM
     Dosage: 25MG ALTERNATE DAYS
     Route: 048
     Dates: start: 20130829, end: 20130909
  2. SODIUM VALPROATE [Concomitant]
     Indication: BLEPHAROSPASM
     Dosage: 200MG TWICE PER DAY
     Route: 048
  3. CHINESE MEDICINE [Concomitant]
     Indication: BLEPHAROSPASM
     Route: 048
     Dates: start: 20130909

REACTIONS (3)
  - Toxic skin eruption [Unknown]
  - Pyrexia [Recovered/Resolved]
  - Rash [Recovered/Resolved]
